FAERS Safety Report 7515612-6 (Version None)
Quarter: 2011Q2

REPORT INFORMATION
  Report Type: 
  Country: None (occurrence: None)
  Receive Date: 20110601
  Receipt Date: 20100716
  Transmission Date: 20111010
  Serious: No
  Sender: FDA-Public Use
  Company Number: US-PFIZER INC-2010089992

PATIENT
  Sex: Female
  Weight: 48 kg

DRUGS (2)
  1. CHANTIX [Suspect]
     Indication: SMOKING CESSATION THERAPY
     Dosage: UNK
     Route: 048
     Dates: start: 20100101
  2. ESTRADIOL [Concomitant]
     Dosage: UNK

REACTIONS (2)
  - ABNORMAL DREAMS [None]
  - NIGHTMARE [None]
